FAERS Safety Report 4647930-3 (Version None)
Quarter: 2005Q2

REPORT INFORMATION
  Report Type: 
  Country: None (occurrence: None)
  Receive Date: 20050426
  Receipt Date: 20050426
  Transmission Date: 20051028
  Serious: Yes (Death)
  Sender: FDA-Public Use
  Company Number: None

PATIENT
  Age: 74 Year
  Sex: Female
  Weight: 88.905 kg

DRUGS (8)
  1. WARFARIN 2.5 MG [Suspect]
     Indication: ATRIAL FIBRILLATION
     Dosage: 2.5 MG DAILY
     Dates: start: 20050203, end: 20050205
  2. WARFARIN 2.5 MG [Suspect]
     Indication: ATRIAL FIBRILLATION
     Dosage: 2.5 MG DAILY
     Dates: start: 20050208
  3. ZOCOR [Concomitant]
  4. SYNTHROID [Concomitant]
  5. PROPAFENONE [Concomitant]
  6. PREDNISONE [Concomitant]
  7. TESSALON [Concomitant]
  8. DEMEROL [Concomitant]

REACTIONS (7)
  - ABDOMINAL DISTENSION [None]
  - ECCHYMOSIS [None]
  - HAEMATOMA [None]
  - INTERNATIONAL NORMALISED RATIO INCREASED [None]
  - MULTI-ORGAN FAILURE [None]
  - RETROPERITONEAL HAEMORRHAGE [None]
  - SECRETION DISCHARGE [None]
